FAERS Safety Report 18198551 (Version 1)
Quarter: 2020Q3

REPORT INFORMATION
  Report Type: Spontaneous
  Country: IN (occurrence: IN)
  Receive Date: 20200826
  Receipt Date: 20200826
  Transmission Date: 20201103
  Serious: Yes (Life-Threatening, Hospitalization)
  Sender: FDA-Public Use
  Company Number: IN-MYLANLABS-2020M1074246

PATIENT
  Age: 28 Year
  Sex: Female

DRUGS (10)
  1. CALCIUM GLUCONATE. [Suspect]
     Active Substance: CALCIUM GLUCONATE
     Indication: SINUS TACHYCARDIA
  2. INSULIN [Suspect]
     Active Substance: INSULIN NOS
     Indication: HYPOTENSION
  3. DEXTROSE. [Suspect]
     Active Substance: DEXTROSE
     Indication: HYPOTENSION
  4. EPINEPHRINE. [Suspect]
     Active Substance: EPINEPHRINE
     Indication: HYPOTENSION
     Route: 042
  5. GLUCAGON. [Suspect]
     Active Substance: GLUCAGON
     Indication: HYPOTENSION
  6. DEXTROSE. [Suspect]
     Active Substance: DEXTROSE
     Indication: SINUS TACHYCARDIA
     Dosage: 0.5 INTERNATIONAL UNIT/KILOGRAM, QH(INSULIN?DEXTROSE INFUSION
     Route: 042
  7. NORADRENALIN                       /00127501/ [Suspect]
     Active Substance: NOREPINEPHRINE\NOREPINEPHRINE BITARTRATE
     Indication: HYPOTENSION
     Route: 042
  8. CALCIUM GLUCONATE. [Suspect]
     Active Substance: CALCIUM GLUCONATE
     Indication: HYPOTENSION
     Dosage: 30 MILLILITER, QH
     Route: 042
  9. GLUCAGON. [Suspect]
     Active Substance: GLUCAGON
     Indication: SINUS TACHYCARDIA
     Dosage: 5 MILLIGRAM(ANOTHER 5 MG REPEATED AFTER 5 MINUTES
     Route: 040
  10. INSULIN [Suspect]
     Active Substance: INSULIN NOS
     Indication: SINUS TACHYCARDIA
     Dosage: 0.5 INTERNATIONAL UNIT/KILOGRAM, QH(INSULIN?DEXTROSE INFUSION
     Route: 042

REACTIONS (1)
  - Drug ineffective [Unknown]
